FAERS Safety Report 16663770 (Version 1)
Quarter: 2019Q3

REPORT INFORMATION
  Report Type: Spontaneous
  Country: None (occurrence: US)
  Receive Date: 20190802
  Receipt Date: 20190802
  Transmission Date: 20191004
  Serious: Yes (Other)
  Sender: FDA-Public Use
  Company Number: US-GLAXOSMITHKLINE-US2019125613

PATIENT
  Age: 78 Year
  Sex: Female

DRUGS (2)
  1. EXCEDRIN TENSION HEADACHE [Suspect]
     Active Substance: ACETAMINOPHEN\CAFFEINE
     Indication: SINUS DISORDER
     Dosage: UNK, (1 CAPSULE)
     Dates: start: 201906
  2. EXCEDRIN TENSION HEADACHE [Suspect]
     Active Substance: ACETAMINOPHEN\CAFFEINE
     Indication: HEADACHE
     Dosage: UNK, (1 CAPSULE)
     Dates: start: 201906

REACTIONS (5)
  - Product use in unapproved indication [Unknown]
  - Haemorrhage [Unknown]
  - Vascular injury [Unknown]
  - Contusion [Unknown]
  - Drug effective for unapproved indication [Unknown]
